FAERS Safety Report 11532811 (Version 1)
Quarter: 2015Q3

REPORT INFORMATION
  Report Type: Other
  Country: GB (occurrence: GB)
  Receive Date: 20150921
  Receipt Date: 20150921
  Transmission Date: 20151125
  Serious: Yes (Other)
  Sender: FDA-Public Use
  Company Number: GB-MYLANLABS-2015M1030613

PATIENT

DRUGS (2)
  1. OLANZAPINE. [Suspect]
     Active Substance: OLANZAPINE
     Indication: ACUTE PSYCHOSIS
     Dosage: 5 MG, QD, AT NIGHT
     Route: 048
     Dates: start: 20150810, end: 20150823
  2. CLONAZEPAM. [Concomitant]
     Active Substance: CLONAZEPAM
     Indication: AGITATION
     Dosage: 0.5 MG, AS NECESSARY, TAKEN ONCE EVERY 3-4 DAYS

REACTIONS (4)
  - Urine flow decreased [Recovering/Resolving]
  - Micturition urgency [Recovering/Resolving]
  - Dysuria [Recovering/Resolving]
  - Urinary retention [Recovering/Resolving]

NARRATIVE: CASE EVENT DATE: 20150821
